FAERS Safety Report 6850394-2 (Version None)
Quarter: 2010Q3

REPORT INFORMATION
  Report Type: 
  Country: None (occurrence: None)
  Receive Date: 20100716
  Receipt Date: 20071016
  Transmission Date: 20110219
  Serious: No
  Sender: FDA-Public Use
  Company Number: US-PFIZER INC-2007087747

PATIENT
  Sex: Female
  Weight: 67.1 kg

DRUGS (5)
  1. CHANTIX [Suspect]
     Indication: SMOKING CESSATION THERAPY
     Route: 048
     Dates: start: 20070901
  2. MOTRIN [Concomitant]
     Indication: BACK DISORDER
  3. ZANAFLEX [Concomitant]
     Indication: BACK DISORDER
  4. BUSPAR [Concomitant]
     Indication: ANXIETY
  5. VITAMINS [Concomitant]

REACTIONS (3)
  - CONSTIPATION [None]
  - FLATULENCE [None]
  - NAUSEA [None]
